FAERS Safety Report 6600145-1 (Version None)
Quarter: 2010Q1

REPORT INFORMATION
  Report Type: 
  Country: None (occurrence: None)
  Receive Date: 20100224
  Receipt Date: 20100218
  Transmission Date: 20100710
  Serious: Yes (Death, Life-Threatening, Hospitalization)
  Sender: FDA-Public Use
  Company Number: A0717632A

PATIENT
  Sex: Male
  Weight: 94 kg

DRUGS (3)
  1. LAPATINIB [Suspect]
     Dosage: 1500MG PER DAY
     Route: 048
     Dates: start: 20080310, end: 20080323
  2. CISPLATIN [Suspect]
     Dosage: 241.7MGM2 CYCLIC
     Route: 042
     Dates: start: 20080317, end: 20080323
  3. RADIOTHERAPY [Suspect]
     Route: 061
     Dates: start: 20080317, end: 20080323

REACTIONS (4)
  - FEBRILE NEUTROPENIA [None]
  - GENERAL PHYSICAL HEALTH DETERIORATION [None]
  - PNEUMONIA [None]
  - SEPSIS [None]
